FAERS Safety Report 8529082-2 (Version None)
Quarter: 2012Q3

REPORT INFORMATION
  Report Type: 
  Country: None (occurrence: None)
  Receive Date: 20120716
  Receipt Date: 20120716
  Transmission Date: 20120928
  Serious: Yes (Life-Threatening, Hospitalization, Other)
  Sender: FDA-Public Use
  Company Number: None

PATIENT
  Sex: Male
  Weight: 118 kg

DRUGS (1)
  1. SEROQUEL XR [Suspect]
     Indication: DEPRESSION
     Dosage: 600 MG ONCE A DAY ORAL
     Route: 048
     Dates: start: 20111111, end: 20120616

REACTIONS (7)
  - SOMNOLENCE [None]
  - WEIGHT INCREASED [None]
  - EAR PAIN [None]
  - DYSPEPSIA [None]
  - NAUSEA [None]
  - VOMITING [None]
  - DRY MOUTH [None]
